FAERS Safety Report 6044837-4 (Version None)
Quarter: 2009Q1

REPORT INFORMATION
  Report Type: 
  Country: None (occurrence: None)
  Receive Date: 20090121
  Receipt Date: 20090113
  Transmission Date: 20090719
  Serious: Yes (Life-Threatening)
  Sender: FDA-Public Use
  Company Number: GB-RANBAXY-2009RR-20583

PATIENT
  Age: 79 Year
  Sex: Female

DRUGS (9)
  1. AMLODIPINE [Suspect]
     Dosage: 5 MG, UNK
     Route: 048
  2. ASPIRIN [Suspect]
     Dosage: 75 MG, UNK
     Route: 048
  3. ATORVASTATIN [Suspect]
     Dosage: 10 MG, UNK
     Route: 048
  4. LANSOPRAZOLE [Suspect]
     Dosage: 30 MG, UNK
     Route: 048
  5. RANITIDINE [Suspect]
     Dosage: 300 MG, UNK
     Route: 048
  6. SERETIDE [Suspect]
     Indication: ASTHMA
     Dosage: 4 DF, UNK
     Route: 055
  7. TEMAZEPAM [Suspect]
     Dosage: 20 MG, UNK
     Route: 048
  8. VALSARTAN [Suspect]
     Dosage: 80 MG, UNK
     Route: 048
  9. VENTOLIN [Suspect]
     Indication: ASTHMA
     Dosage: 800 UG, UNK
     Route: 055

REACTIONS (2)
  - ASTHMA [None]
  - LOWER RESPIRATORY TRACT INFECTION [None]
